FAERS Safety Report 26145622 (Version 1)
Quarter: 2025Q4

REPORT INFORMATION
  Report Type: Spontaneous
  Country: GB (occurrence: GB)
  Receive Date: 20251211
  Receipt Date: 20251211
  Transmission Date: 20260117
  Serious: Yes (Hospitalization)
  Sender: MERZ
  Company Number: GB-MERZ PHARMACEUTICALS LLC-ACO_179965_2025

PATIENT

DRUGS (1)
  1. DALFAMPRIDINE [Suspect]
     Active Substance: DALFAMPRIDINE
     Indication: Multiple sclerosis
     Dosage: 10 MILLIGRAM, BID (TAKE ONE TABLET TWICE A DAY)
     Route: 048

REACTIONS (1)
  - Fall [Unknown]
